FAERS Safety Report 7354309-2 (Version None)
Quarter: 2011Q1

REPORT INFORMATION
  Report Type: 
  Country: None (occurrence: None)
  Receive Date: 20110316
  Receipt Date: 20110307
  Transmission Date: 20110831
  Serious: No
  Sender: FDA-Public Use
  Company Number: US-BIOGENIDEC-2011BI008796

PATIENT
  Age: 63 Year
  Sex: Male

DRUGS (4)
  1. CYTOXAN [Concomitant]
     Indication: MULTIPLE SCLEROSIS
  2. VICODIN [Concomitant]
     Indication: INTERVERTEBRAL DISC PROTRUSION
  3. AVONEX [Suspect]
     Indication: MULTIPLE SCLEROSIS
     Route: 030
     Dates: start: 20110223
  4. PAXIL [Concomitant]
     Indication: DEPRESSION

REACTIONS (4)
  - PROSTATIC PAIN [None]
  - INJECTION SITE HAEMATOMA [None]
  - DEPRESSION [None]
  - INFLUENZA LIKE ILLNESS [None]
